FAERS Safety Report 4426137-9 (Version None)
Quarter: 2004Q3

REPORT INFORMATION
  Report Type: 
  Country: None (occurrence: None)
  Receive Date: 20040811
  Receipt Date: 20040726
  Transmission Date: 20050211
  Serious: Yes (Death, Other)
  Sender: FDA-Public Use
  Company Number: USA030433613

PATIENT
  Age: 96 Year
  Sex: Female
  Weight: 35 kg

DRUGS (4)
  1. FORTEO [Suspect]
     Indication: OSTEOPOROSIS
     Dosage: 20 UG DAY
     Dates: start: 20030326, end: 20030701
  2. GARLIC [Concomitant]
  3. MECLIZINE [Concomitant]
  4. MULTI-VITAMIN [Concomitant]

REACTIONS (5)
  - ABASIA [None]
  - FALL [None]
  - JOINT INJURY [None]
  - PAIN IN EXTREMITY [None]
  - SKELETAL INJURY [None]
